FAERS Safety Report 17671253 (Version 1)
Quarter: 2020Q2

REPORT INFORMATION
  Report Type: Spontaneous
  Country: PL (occurrence: PL)
  Receive Date: 20200415
  Receipt Date: 20200415
  Transmission Date: 20200713
  Serious: Yes (Other)
  Sender: FDA-Public Use
  Company Number: PL-MYLANLABS-2020M1037898

PATIENT
  Age: 64 Year
  Sex: Male

DRUGS (8)
  1. VINCRISTINE [Suspect]
     Active Substance: VINCRISTINE
     Indication: HODGKIN^S DISEASE
     Dosage: 1.4 MG/M2, CYCLIC (DAY OF ADMINISTRATION-1, AFTER THE FIFTH COURSE))
     Route: 042
  2. BLEOMYCIN [Suspect]
     Active Substance: BLEOMYCIN SULFATE
     Indication: HODGKIN^S DISEASE
     Dosage: 15 MG, CYCLIC (DAY OF ADMINISTRATION-3, 5 AND 7, AFTER THE FIFTH COURSE))
     Route: 030
  3. PREDNISONE. [Suspect]
     Active Substance: PREDNISONE
     Indication: HODGKIN^S DISEASE
     Dosage: 30 MG/M2, CYCLIC (PO, AFTER THE FIFTH COURSE)
     Route: 048
  4. EPIRUBICIN [Suspect]
     Active Substance: EPIRUBICIN
     Indication: HODGKIN^S DISEASE
     Dosage: 30 MG/M2, CYCLIC (DAY OF ADMINISTRATION-1, AFTER THE FIFTH COURSE))
     Route: 042
  5. VINBLASTINE [Suspect]
     Active Substance: VINBLASTINE
     Indication: HODGKIN^S DISEASE
     Dosage: 6 MG/M2, CYCLIC (DAY OF ADMINISTRATION-1, AFTER THE FIFTH COURSE))
     Route: 042
  6. LOMUSTINE. [Suspect]
     Active Substance: LOMUSTINE
     Indication: HODGKIN^S DISEASE
     Dosage: 80 MG/M2, CYCLIC (PO) (DAY OF ADMINISTRATION-2, AFTER THE FIFTH COURSE))
     Route: 048
  7. METHOTREXATE. [Suspect]
     Active Substance: METHOTREXATE
     Indication: HODGKIN^S DISEASE
     Dosage: 30 MG/M2, CYCLIC (DAY OF ADMINISTRATION-1, AFTER THE FIFTH COURSE))
     Route: 042
  8. CHLORAMBUCIL [Suspect]
     Active Substance: CHLORAMBUCIL
     Indication: HODGKIN^S DISEASE
     Dosage: 6 MG, CYCLIC (PO) (DAY OF ADMINISTRATION-1-14, AFTER THE FIFTH COURSE))
     Route: 048

REACTIONS (2)
  - Agranulocytosis [Recovered/Resolved]
  - Thrombocytopenia [Recovered/Resolved]
